FAERS Safety Report 20305942 (Version 2)
Quarter: 2022Q1

REPORT INFORMATION
  Report Type: Spontaneous
  Country: US (occurrence: US)
  Receive Date: 20220106
  Receipt Date: 20220301
  Transmission Date: 20220423
  Serious: No
  Sender: FDA-Public Use
  Company Number: US-BAYER-2022A000940

PATIENT
  Age: 71 Year
  Sex: Female

DRUGS (3)
  1. ADEMPAS [Suspect]
     Active Substance: RIOCIGUAT
     Indication: Pulmonary hypertension
     Dates: start: 20210101
  2. LETAIRIS [Concomitant]
     Active Substance: AMBRISENTAN
     Indication: Pulmonary hypertension
  3. ATENOLOL [Concomitant]
     Active Substance: ATENOLOL

REACTIONS (1)
  - Supraventricular extrasystoles [Recovered/Resolved]
